FAERS Safety Report 10678720 (Version 2)
Quarter: 2015Q2

REPORT INFORMATION
  Report Type: Spontaneous
  Country: US (occurrence: US)
  Receive Date: 20141229
  Receipt Date: 20150417
  Transmission Date: 20150821
  Serious: No
  Sender: FDA-Public Use
  Company Number: US-JNJFOC-20141206658

PATIENT
  Sex: Female

DRUGS (4)
  1. BENZTROPINE [Concomitant]
     Active Substance: BENZTROPINE
     Indication: PARKINSONISM
     Route: 065
     Dates: start: 20141010
  2. INVEGA SUSTENNA [Suspect]
     Active Substance: PALIPERIDONE PALMITATE
     Indication: SCHIZOPHRENIA
     Route: 030
  3. INVEGA SUSTENNA [Suspect]
     Active Substance: PALIPERIDONE PALMITATE
     Indication: SCHIZOPHRENIA
     Route: 030
     Dates: start: 20140829, end: 20141117
  4. QUETIAPINE [Concomitant]
     Active Substance: QUETIAPINE
     Indication: DRUG THERAPY
     Route: 065
     Dates: start: 20140909

REACTIONS (1)
  - Fungal infection [Recovered/Resolved]
